FAERS Safety Report 6312231-4 (Version None)
Quarter: 2009Q3

REPORT INFORMATION
  Report Type: 
  Country: None (occurrence: None)
  Receive Date: 20090813
  Receipt Date: 20090813
  Transmission Date: 20100115
  Serious: Yes (Disabling, Other)
  Sender: FDA-Public Use
  Company Number: None

PATIENT
  Sex: Male
  Weight: 83.9154 kg

DRUGS (1)
  1. CIPRO [Suspect]
     Indication: KIDNEY INFECTION
     Dosage: 500 MG T.I.D. PO
     Route: 048
     Dates: start: 20090728, end: 20090803

REACTIONS (3)
  - CHEILITIS [None]
  - LIP SWELLING [None]
  - SWELLING FACE [None]
